FAERS Safety Report 7286261-2 (Version None)
Quarter: 2011Q1

REPORT INFORMATION
  Report Type: 
  Country: None (occurrence: None)
  Receive Date: 20110210
  Receipt Date: 20110202
  Transmission Date: 20110831
  Serious: Yes (Hospitalization)
  Sender: FDA-Public Use
  Company Number: PHHO2010DE13679

PATIENT
  Sex: Male
  Weight: 86 kg

DRUGS (10)
  1. PREDNISOLONE [Concomitant]
  2. EVEROLIMUS [Suspect]
     Dosage: 3.75 MG, BID
     Route: 048
  3. MYFORTIC [Suspect]
     Indication: LIVER TRANSPLANT
     Dosage: 2160 MG, UNK
     Route: 048
     Dates: start: 20100721
  4. UDC [Concomitant]
  5. METHIMAZOLE [Concomitant]
  6. METOPROLOL SUCCINATE [Concomitant]
  7. ZEFFIX [Concomitant]
  8. IRENAT [Concomitant]
  9. EVEROLIMUS [Suspect]
     Indication: LIVER TRANSPLANT
     Dosage: 16 MG, UNK
     Route: 048
     Dates: start: 20100721
  10. VALCYTE [Concomitant]

REACTIONS (7)
  - INFECTION [None]
  - HEPATITIS B [None]
  - LIVER DISORDER [None]
  - LEUKOPENIA [None]
  - ASCITES [None]
  - IMPAIRED HEALING [None]
  - ACUTE HEPATIC FAILURE [None]
